FAERS Safety Report 7979879-2 (Version None)
Quarter: 2011Q4

REPORT INFORMATION
  Report Type: 
  Country: None (occurrence: None)
  Receive Date: 20111130
  Receipt Date: 20111115
  Transmission Date: 20120403
  Serious: Yes (Other)
  Sender: FDA-Public Use
  Company Number: US-1188498

PATIENT
  Age: 83 Year
  Sex: Female
  Weight: 48.9885 kg

DRUGS (9)
  1. NEVANAC [Suspect]
     Indication: PREOPERATIVE CARE
     Dosage: (OPHTHALMIC)
     Route: 047
     Dates: start: 20111005, end: 20111005
  2. MYDRIACYL [Suspect]
     Indication: PREOPERATIVE CARE
     Dosage: (OPHTHALMIC)
     Route: 047
     Dates: start: 20111005, end: 20111005
  3. BSS [Suspect]
     Indication: EYE IRRIGATION
     Dosage: (INTRAOCULAR)
     Route: 031
     Dates: start: 20111005, end: 20111005
  4. BETADINE [Suspect]
     Dosage: (OPHTHALMIC)
     Route: 047
  5. BSS PLUS [Suspect]
     Indication: EYE IRRIGATION
     Dosage: (INTRAOCULAR)
     Route: 031
  6. EPINEPHRINE [Suspect]
     Dosage: (INTRAOCULAR)
     Route: 031
  7. NEO-SYNEPHRINE 2.5% EYE DROPS (NOT SPECIFIED) [Suspect]
     Indication: PREOPERATIVE CARE
     Dosage: (OPHTHALMIC)
     Route: 047
     Dates: start: 20111005, end: 20111005
  8. VIGAMOX [Suspect]
     Indication: PREOPERATIVE CARE
     Dosage: (OPHTHALMIC)
     Route: 047
     Dates: start: 20111005, end: 20111005
  9. TETRACYCLINE [Suspect]
     Indication: PREOPERATIVE CARE
     Dosage: (OPHTHALMIC)
     Route: 047
     Dates: start: 20111005, end: 20111005

REACTIONS (1)
  - TOXIC ANTERIOR SEGMENT SYNDROME [None]
